FAERS Safety Report 14251139 (Version 2)
Quarter: 2017Q4

REPORT INFORMATION
  Report Type: Spontaneous
  Country: IT (occurrence: IT)
  Receive Date: 20171205
  Receipt Date: 20171214
  Transmission Date: 20180321
  Serious: Yes (Other)
  Sender: FDA-Public Use
  Company Number: IT-ASTRAZENECA-2017SF22599

PATIENT
  Age: 1 Year
  Sex: Male

DRUGS (1)
  1. AIRCORT [Suspect]
     Active Substance: BECLOMETHASONE DIPROPIONATE
     Indication: LARYNGITIS
     Route: 055
     Dates: start: 20171107

REACTIONS (1)
  - Laryngeal dyspnoea [Recovering/Resolving]

NARRATIVE: CASE EVENT DATE: 20171109
